FAERS Safety Report 6879638-8 (Version None)
Quarter: 2010Q3

REPORT INFORMATION
  Report Type: 
  Country: None (occurrence: None)
  Receive Date: 20100728
  Receipt Date: 20090805
  Transmission Date: 20110219
  Serious: No
  Sender: FDA-Public Use
  Company Number: US-MYLANLABS-2009S1014074

PATIENT
  Age: 64 Year
  Sex: Female

DRUGS (4)
  1. CLONIDINE HYDROCHLORIDE [Suspect]
     Indication: BLOOD PRESSURE INCREASED
     Route: 048
     Dates: start: 20090804, end: 20090804
  2. COZAAR [Concomitant]
  3. COLCHICINE [Concomitant]
  4. MECLIZINE [Concomitant]

REACTIONS (27)
  - ARTHRALGIA [None]
  - ASTHMA [None]
  - BACK PAIN [None]
  - BURNING SENSATION [None]
  - CARPAL TUNNEL SYNDROME [None]
  - CHEST PAIN [None]
  - COUGH [None]
  - DIZZINESS [None]
  - DYSPEPSIA [None]
  - DYSPNOEA [None]
  - EYE IRRITATION [None]
  - GOUT [None]
  - HALLUCINATION [None]
  - HEADACHE [None]
  - HEART RATE INCREASED [None]
  - HOT FLUSH [None]
  - HYPOAESTHESIA ORAL [None]
  - INSOMNIA [None]
  - LIP BLISTER [None]
  - MYALGIA [None]
  - NECK PAIN [None]
  - NERVOUSNESS [None]
  - RASH MACULAR [None]
  - SWELLING FACE [None]
  - TONGUE DISCOLOURATION [None]
  - VISION BLURRED [None]
  - WHEEZING [None]
